FAERS Safety Report 16285380 (Version 1)
Quarter: 2019Q2

REPORT INFORMATION
  Report Type: Spontaneous
  Country: US (occurrence: US)
  Receive Date: 20190508
  Receipt Date: 20190508
  Transmission Date: 20190711
  Serious: Yes (Hospitalization, Other)
  Sender: FDA-Public Use
  Company Number: US-AMGEN-USASP2019069782

PATIENT
  Age: 52 Year
  Sex: Female

DRUGS (42)
  1. ARANESP [Suspect]
     Active Substance: DARBEPOETIN ALFA
     Indication: PRODUCT USED FOR UNKNOWN INDICATION
     Dosage: UNK
     Route: 065
  2. IMUREL [Concomitant]
     Active Substance: AZATHIOPRINE SODIUM
  3. RANITIDINE. [Concomitant]
     Active Substance: RANITIDINE
  4. SODIUM BICARBONATE. [Concomitant]
     Active Substance: SODIUM BICARBONATE
  5. RENVELA [Concomitant]
     Active Substance: SEVELAMER CARBONATE
  6. GABAPENTINE [Concomitant]
     Active Substance: GABAPENTIN
  7. VALACYCLOVIR [Concomitant]
     Active Substance: VALACYCLOVIR HYDROCHLORIDE
  8. FUROSEMIDE. [Concomitant]
     Active Substance: FUROSEMIDE
  9. KAYEXALATE [Concomitant]
     Active Substance: SODIUM POLYSTYRENE SULFONATE
  10. CALCIPARINE [Concomitant]
     Active Substance: HEPARIN CALCIUM
  11. BACTRIM [Concomitant]
     Active Substance: SULFAMETHOXAZOLE\TRIMETHOPRIM
  12. DIFFU K [Concomitant]
     Active Substance: POTASSIUM CHLORIDE
  13. IRON [Concomitant]
     Active Substance: IRON
  14. ROPIVACAINE. [Concomitant]
     Active Substance: ROPIVACAINE HYDROCHLORIDE
  15. ACUPAN [Concomitant]
     Active Substance: NEFOPAM HYDROCHLORIDE
  16. INEXIUM [Concomitant]
     Active Substance: ESOMEPRAZOLE
  17. SOLU-MEDROL [Concomitant]
     Active Substance: METHYLPREDNISOLONE SODIUM SUCCINATE
  18. THYMOGLOBULINE [Concomitant]
     Active Substance: LAPINE T-LYMPHOCYTE IMMUNE GLOBULIN
  19. MYFORTIC [Concomitant]
     Active Substance: MYCOPHENOLATE SODIUM
  20. TRAMADOL. [Concomitant]
     Active Substance: TRAMADOL
  21. DROLEPTAN [Concomitant]
     Active Substance: DROPERIDOL
  22. CRESTOR [Concomitant]
     Active Substance: ROSUVASTATIN CALCIUM
  23. ZOPHREN [Concomitant]
     Active Substance: ONDANSETRON
  24. PRIMPERAN [Concomitant]
     Active Substance: METOCLOPRAMIDE HYDROCHLORIDE
  25. LYRICA [Concomitant]
     Active Substance: PREGABALIN
  26. NEFOPAM [Concomitant]
     Active Substance: NEFOPAM
  27. ROVALCYTE [Concomitant]
     Active Substance: VALGANCICLOVIR HYDROCHLORIDE
  28. TERCIAN [Concomitant]
     Active Substance: CYAMEMAZINE
  29. LACTULOSE. [Concomitant]
     Active Substance: LACTULOSE
  30. LERCAN [Concomitant]
     Active Substance: LERCANIDIPINE
  31. ALPRAZOLAM. [Concomitant]
     Active Substance: ALPRAZOLAM
  32. CORTANCYL [Concomitant]
     Active Substance: PREDNISONE
  33. URAPIDIL [Concomitant]
     Active Substance: URAPIDIL
  34. MORPHINE [Concomitant]
     Active Substance: MORPHINE
  35. OXYCONTIN [Concomitant]
     Active Substance: OXYCODONE HYDROCHLORIDE
  36. AMLOR [Concomitant]
     Active Substance: AMLODIPINE BESYLATE
  37. GAVISCON [Concomitant]
     Active Substance: ALUMINUM HYDROXIDE\MAGNESIUM CARBONATE
  38. ADVAGRAF [Concomitant]
     Active Substance: TACROLIMUS
  39. MIMPARA [Suspect]
     Active Substance: CINACALCET HYDROCHLORIDE
     Indication: PRODUCT USED FOR UNKNOWN INDICATION
     Dosage: UNK
     Route: 065
  40. OXYNORMORO [Concomitant]
     Active Substance: OXYCODONE HYDROCHLORIDE
  41. ATARAX [Concomitant]
     Active Substance: HYDROXYZINE HYDROCHLORIDE
  42. DOLIPRANE [Concomitant]
     Active Substance: ACETAMINOPHEN

REACTIONS (25)
  - Hyperparathyroidism tertiary [Recovered/Resolved]
  - Atrioventricular block first degree [Unknown]
  - Delayed graft function [Recovered/Resolved]
  - Asthenia [Recovered/Resolved]
  - Herpes zoster [Unknown]
  - Hypercalcaemia [Unknown]
  - Metabolic acidosis [Unknown]
  - Anaemia [Unknown]
  - Nausea [Unknown]
  - Acute pulmonary oedema [Recovered/Resolved]
  - Renal tubular atrophy [Recovered/Resolved]
  - Blood creatinine increased [Unknown]
  - Peritonitis [Recovered/Resolved]
  - Constipation [Unknown]
  - Vomiting [Recovered/Resolved]
  - Lymphocele [Unknown]
  - Hypotension [Unknown]
  - Abdominal pain [Unknown]
  - Diabetes mellitus [Recovered/Resolved]
  - Hyperkalaemia [Unknown]
  - Renal impairment [Unknown]
  - Ventricular hypokinesia [Unknown]
  - Kidney fibrosis [Recovered/Resolved]
  - Hypokalaemia [Unknown]
  - Insomnia [Unknown]

NARRATIVE: CASE EVENT DATE: 20151215
